FAERS Safety Report 10265803 (Version 2)
Quarter: 2014Q2

REPORT INFORMATION
  Report Type: Spontaneous
  Country: US (occurrence: US)
  Receive Date: 20140627
  Receipt Date: 20140630
  Transmission Date: 20141212
  Serious: Yes (Hospitalization)
  Sender: FDA-Public Use
  Company Number: US-GLAXOSMITHKLINE-A1078093A

PATIENT
  Age: 60 Year
  Sex: Female

DRUGS (7)
  1. VENTOLIN [Suspect]
     Indication: DYSPNOEA
     Dosage: 2PUFF FOUR TIMES PER DAY
     Route: 055
     Dates: start: 2004
  2. LABETALOL [Concomitant]
  3. UNKNOWN MEDICATION [Concomitant]
  4. LISINOPRIL [Concomitant]
  5. CLOPIDOGREL BISULPHATE [Concomitant]
  6. SIMVASTATIN [Concomitant]
  7. BABY ASPIRIN [Concomitant]

REACTIONS (9)
  - Myocardial infarction [Unknown]
  - Stent placement [Unknown]
  - Transfusion [Unknown]
  - Device misuse [Unknown]
  - Blood test abnormal [Unknown]
  - Dyspnoea [Unknown]
  - Drug administration error [Unknown]
  - Ill-defined disorder [Unknown]
  - Drug ineffective [Unknown]
